FAERS Safety Report 23168525 (Version 1)
Quarter: 2023Q4

REPORT INFORMATION
  Report Type: Spontaneous
  Country: LB (occurrence: LB)
  Receive Date: 20231110
  Receipt Date: 20231110
  Transmission Date: 20240110
  Serious: Yes (Life-Threatening, Hospitalization, Other)
  Sender: FDA-Public Use
  Company Number: LB-CIPLA LTD.-2023LB06896

PATIENT

DRUGS (2)
  1. PACLITAXEL [Suspect]
     Active Substance: PACLITAXEL
     Indication: Ovarian cancer stage III
     Dosage: UNK, FIRST ADJUVANT CHEMOTHERAPY CYCLE
     Route: 065
  2. CARBOPLATIN [Suspect]
     Active Substance: CARBOPLATIN
     Indication: Ovarian cancer stage III
     Dosage: UNK, FIRST ADJUVANT CHEMOTHERAPY CYCLE
     Route: 065

REACTIONS (3)
  - Thrombocytopenia [Unknown]
  - Acute myeloid leukaemia [Unknown]
  - Neutropenia [Unknown]
